FAERS Safety Report 25373569 (Version 1)
Quarter: 2025Q2

REPORT INFORMATION
  Report Type: Spontaneous
  Country: US (occurrence: None)
  Receive Date: 20250528
  Receipt Date: 20250528
  Transmission Date: 20250717
  Serious: Yes (Hospitalization)
  Sender: FDA-CTU
  Company Number: None

PATIENT
  Age: 61 Year
  Sex: Male

DRUGS (9)
  1. SPRYCEL [Suspect]
     Active Substance: DASATINIB
     Indication: Chronic myeloid leukaemia
     Dosage: FREQUENCY : DAILY;?
     Route: 048
     Dates: start: 20250423, end: 20250514
  2. AMBIEN [Concomitant]
     Active Substance: ZOLPIDEM TARTRATE
  3. AMLODIPINE BESYLATE [Concomitant]
     Active Substance: AMLODIPINE BESYLATE
  4. CARDURA [Concomitant]
     Active Substance: DOXAZOSIN MESYLATE
  5. CELEBREX [Concomitant]
     Active Substance: CELECOXIB
  6. IRBESARTAN [Concomitant]
     Active Substance: IRBESARTAN
  7. LOVAZA [Concomitant]
     Active Substance: OMEGA-3-ACID ETHYL ESTERS
  8. TOPROL XL [Concomitant]
     Active Substance: METOPROLOL SUCCINATE
  9. TRAMADOL [Concomitant]
     Active Substance: TRAMADOL

REACTIONS (12)
  - Diarrhoea [None]
  - Fatigue [None]
  - Pericardial effusion [None]
  - Activities of daily living decreased [None]
  - Constipation [None]
  - Neck pain [None]
  - Dysphonia [None]
  - Headache [None]
  - Oropharyngeal pain [None]
  - Dysphagia [None]
  - Gait inability [None]
  - Weight increased [None]

NARRATIVE: CASE EVENT DATE: 20250514
